FAERS Safety Report 10416136 (Version 5)
Quarter: 2016Q1

REPORT INFORMATION
  Report Type: Report from Study
  Country: BR (occurrence: BR)
  Receive Date: 20140828
  Receipt Date: 20160217
  Transmission Date: 20160525
  Serious: Yes (Death, Hospitalization, Other)
  Sender: FDA-Public Use
  Company Number: BR-ROCHE-1455964

PATIENT
  Age: 46 Year
  Sex: Female
  Weight: 40 kg

DRUGS (1)
  1. AVASTIN [Suspect]
     Active Substance: BEVACIZUMAB
     Indication: COLORECTAL CANCER
     Route: 065
     Dates: start: 20140618

REACTIONS (16)
  - Metastases to liver [Fatal]
  - Metastasis [Fatal]
  - Malaise [Unknown]
  - Neutropenia [Not Recovered/Not Resolved]
  - Influenza [Not Recovered/Not Resolved]
  - Decreased appetite [Not Recovered/Not Resolved]
  - Eating disorder [Not Recovered/Not Resolved]
  - Weight decreased [Unknown]
  - Dysuria [Not Recovered/Not Resolved]
  - Pulmonary pain [Not Recovered/Not Resolved]
  - Pain [Unknown]
  - Headache [Not Recovered/Not Resolved]
  - Nervousness [Unknown]
  - Pain in extremity [Not Recovered/Not Resolved]
  - Metastases to lung [Fatal]
  - Urinary tract infection [Not Recovered/Not Resolved]

NARRATIVE: CASE EVENT DATE: 20140902
